FAERS Safety Report 4519362-X (Version None)
Quarter: 2004Q4

REPORT INFORMATION
  Report Type: 
  Country: None (occurrence: None)
  Receive Date: 20041130
  Receipt Date: 20041118
  Transmission Date: 20050328
  Serious: No
  Sender: FDA-Public Use
  Company Number: A0534357A

PATIENT
  Age: 75 Year
  Sex: Female

DRUGS (5)
  1. NICODERM CQ [Suspect]
     Indication: SMOKING CESSATION THERAPY
     Dosage: TRANSDERMAL
     Route: 062
     Dates: start: 20040913
  2. CLOPIDOGREL BISULFATE [Concomitant]
  3. ATORVASTATIN CALCIUM [Concomitant]
  4. ANTIHYPERTENSIVE [Concomitant]
  5. THYROID MEDICATION [Concomitant]

REACTIONS (1)
  - ARTERIAL OCCLUSIVE DISEASE [None]
